FAERS Safety Report 7938146-3 (Version None)
Quarter: 2011Q4

REPORT INFORMATION
  Report Type: 
  Country: None (occurrence: None)
  Receive Date: 20111123
  Receipt Date: 20111027
  Transmission Date: 20120403
  Serious: No
  Sender: FDA-Public Use
  Company Number: US-BRISTOL-MYERS SQUIBB COMPANY-16201626

PATIENT
  Age: 72 Year
  Sex: Male
  Weight: 111 kg

DRUGS (9)
  1. LIPITOR [Concomitant]
  2. VITAMIN B COMPLEX CAP [Concomitant]
  3. ONGLYZA [Suspect]
     Indication: DIABETES MELLITUS
     Dosage: RESTARTED THE ONGLYZA ON 24 OCT 2011.
     Route: 048
     Dates: start: 20110701
  4. GLYBURIDE [Concomitant]
  5. COQ10 [Concomitant]
  6. VITAMIN D [Concomitant]
  7. ASPIRIN [Concomitant]
  8. DIOVAN [Concomitant]
  9. VERAPAMIL [Concomitant]

REACTIONS (1)
  - RASH PRURITIC [None]
